FAERS Safety Report 24721235 (Version 2)
Quarter: 2024Q4

REPORT INFORMATION
  Report Type: Spontaneous
  Country: FR (occurrence: FR)
  Receive Date: 20241211
  Receipt Date: 20241225
  Transmission Date: 20250114
  Serious: No
  Sender: REGENERON
  Company Number: FR-SANOFI-02328180

PATIENT
  Sex: Female

DRUGS (1)
  1. PRALUENT [Suspect]
     Active Substance: ALIROCUMAB
     Indication: Product used for unknown indication
     Dosage: UNK

REACTIONS (1)
  - Hepatic enzyme increased [Unknown]
